FAERS Safety Report 9468045 (Version 1)
Quarter: 2013Q3

REPORT INFORMATION
  Report Type: Spontaneous
  Country: US (occurrence: US)
  Receive Date: 20130821
  Receipt Date: 20130821
  Transmission Date: 20140515
  Serious: No
  Sender: FDA-Public Use
  Company Number: US-TEVA-427142USA

PATIENT
  Age: 26 Year
  Sex: Female
  Weight: 99.88 kg

DRUGS (3)
  1. NUVIGIL [Suspect]
     Indication: NARCOLEPSY
     Route: 048
  2. PROZAC [Concomitant]
     Indication: DEPRESSION
  3. NEXIUM [Concomitant]
     Indication: GASTROOESOPHAGEAL REFLUX DISEASE

REACTIONS (5)
  - Feeling abnormal [Not Recovered/Not Resolved]
  - Headache [Recovered/Resolved]
  - Thirst [Recovered/Resolved]
  - Emotional disorder [Recovered/Resolved]
  - Nausea [Unknown]
